FAERS Safety Report 16475520 (Version 1)
Quarter: 2019Q2

REPORT INFORMATION
  Report Type: Report from Study
  Country: CA (occurrence: CA)
  Receive Date: 20190625
  Receipt Date: 20190625
  Transmission Date: 20190711
  Serious: Yes (Other)
  Sender: FDA-Public Use
  Company Number: CA-TEVA-2019-CA-1067879

PATIENT
  Age: 69 Year
  Sex: Male

DRUGS (18)
  1. AMIODARONE HYDROCHLORIDE. [Suspect]
     Active Substance: AMIODARONE HYDROCHLORIDE
     Indication: PRODUCT USED FOR UNKNOWN INDICATION
     Route: 065
  2. HYDRALAZINE [Concomitant]
     Active Substance: HYDRALAZINE HYDROCHLORIDE
  3. RAMIPRIL. [Concomitant]
     Active Substance: RAMIPRIL
  4. WARFARIN [Concomitant]
     Active Substance: WARFARIN
  5. METOCLOPRAMIDE. [Concomitant]
     Active Substance: METOCLOPRAMIDE
  6. NITRO [GLYCERYL TRINITRATE] [Concomitant]
     Active Substance: NITROGLYCERIN
  7. SEA BREEZE [Concomitant]
  8. SYNTHROID [Concomitant]
     Active Substance: LEVOTHYROXINE SODIUM
  9. FABRAZYME [Interacting]
     Active Substance: AGALSIDASE BETA
     Indication: FABRY^S DISEASE
     Route: 041
  10. FOLIC ACID. [Concomitant]
     Active Substance: FOLIC ACID
  11. VITAMIN D [Concomitant]
     Active Substance: VITAMIN D NOS
  12. METOPROLOL. [Concomitant]
     Active Substance: METOPROLOL
  13. MOMETASONE FUROATE. [Concomitant]
     Active Substance: MOMETASONE FUROATE
  14. CRESTOR [Concomitant]
     Active Substance: ROSUVASTATIN CALCIUM
  15. FLONASE [Concomitant]
     Active Substance: FLUTICASONE PROPIONATE
     Indication: NASAL POLYPS
  16. GABAPENTIN. [Concomitant]
     Active Substance: GABAPENTIN
  17. ZENTRIL [Concomitant]
  18. LASIX [Concomitant]
     Active Substance: FUROSEMIDE

REACTIONS (4)
  - Cardiac failure chronic [Unknown]
  - Hypersensitivity [Unknown]
  - Deafness [Unknown]
  - Drug interaction [Unknown]
